FAERS Safety Report 9417414 (Version 1)
Quarter: 2013Q3

REPORT INFORMATION
  Report Type: Spontaneous
  Country: US (occurrence: US)
  Receive Date: 20130724
  Receipt Date: 20130724
  Transmission Date: 20140515
  Serious: No
  Sender: FDA-Public Use
  Company Number: US-BRISTOL-MYERS SQUIBB COMPANY-18799122

PATIENT
  Sex: Female

DRUGS (1)
  1. ELIQUIS [Suspect]
     Dosage: 1 TABLET

REACTIONS (3)
  - Dizziness [Recovered/Resolved]
  - Limb discomfort [Unknown]
  - Visual acuity reduced [Unknown]
